FAERS Safety Report 21599330 (Version 1)
Quarter: 2022Q4

REPORT INFORMATION
  Report Type: Spontaneous
  Country: US (occurrence: US)
  Receive Date: 20221115
  Receipt Date: 20221115
  Transmission Date: 20230113
  Serious: Yes (Other)
  Sender: FDA-Public Use
  Company Number: US-BRISTOL-MYERS SQUIBB COMPANY-2022-136370

PATIENT
  Age: 70 Year
  Sex: Female
  Weight: 52.16 kg

DRUGS (4)
  1. ELIQUIS [Suspect]
     Active Substance: APIXABAN
     Indication: Cerebrovascular accident prophylaxis
     Route: 048
     Dates: start: 20220813
  2. ELIQUIS [Suspect]
     Active Substance: APIXABAN
     Indication: Deep vein thrombosis
  3. TUMS [Concomitant]
     Active Substance: CALCIUM CARBONATE
     Route: 065
  4. GAS-X [Concomitant]
     Active Substance: DIMETHICONE
     Indication: Product used for unknown indication
     Route: 065

REACTIONS (5)
  - Rheumatoid arthritis [Unknown]
  - Dyspnoea [Unknown]
  - Feeling jittery [Unknown]
  - Tremor [Unknown]
  - Vertigo [Unknown]

NARRATIVE: CASE EVENT DATE: 20220813
